FAERS Safety Report 5390121-1 (Version None)
Quarter: 2007Q3

REPORT INFORMATION
  Report Type: 
  Country: None (occurrence: None)
  Receive Date: 20070718
  Receipt Date: 20070712
  Transmission Date: 20080115
  Serious: Yes (Other)
  Sender: FDA-Public Use
  Company Number: B0479560A

PATIENT
  Sex: Female

DRUGS (1)
  1. ZOVIRAX [Suspect]
     Indication: HERPES ZOSTER
     Dosage: 850MG FIVE TIMES PER DAY

REACTIONS (6)
  - ASCITES [None]
  - ASTHENIA [None]
  - DYSPHONIA [None]
  - NAUSEA [None]
  - OEDEMA [None]
  - PRURITUS [None]
